FAERS Safety Report 6801839-5 (Version None)
Quarter: 2010Q2

REPORT INFORMATION
  Report Type: 
  Country: None (occurrence: None)
  Receive Date: 20100629
  Receipt Date: 20100617
  Transmission Date: 20101027
  Serious: Yes (Hospitalization)
  Sender: FDA-Public Use
  Company Number: KR-PFIZER INC-2009250478

PATIENT
  Age: 40 Year
  Sex: Male
  Weight: 59 kg

DRUGS (10)
  1. VORICONAZOLE [Suspect]
     Indication: ASPERGILLOSIS
     Dosage: UNK MG, 2X/DAY
     Route: 042
     Dates: start: 20080122, end: 20080129
  2. VORICONAZOLE [Suspect]
     Dosage: 200 MG, 2X/DAY
     Dates: start: 20080312, end: 20080318
  3. NEUTROGIN [Concomitant]
     Dosage: UNK
     Route: 058
     Dates: start: 20071230, end: 20080124
  4. MEROPEN [Concomitant]
     Indication: ANTIBIOTIC THERAPY
     Dosage: UNK
     Route: 042
     Dates: start: 20080111, end: 20080130
  5. VANCOMYCIN [Concomitant]
     Indication: ANTIBIOTIC THERAPY
     Dosage: UNK
     Route: 042
     Dates: start: 20071230, end: 20080127
  6. MAGMIL [Concomitant]
     Indication: CONSTIPATION
     Dosage: UNK
     Route: 048
     Dates: start: 20071228, end: 20080209
  7. HYDROCORTISONE SODIUM SUCCINATE [Concomitant]
     Indication: RASH
     Dosage: UNK
     Route: 042
     Dates: start: 20080126, end: 20080126
  8. CANCIDAS [Concomitant]
     Indication: ASPERGILLOSIS
     Route: 042
     Dates: start: 20080130, end: 20080208
  9. PHENIRAMINE [Concomitant]
     Indication: ANTIALLERGIC THERAPY
     Dosage: 4 MG, 1X/DAY
     Route: 042
     Dates: start: 20080120, end: 20080317
  10. MUCOSTA [Concomitant]
     Indication: ANTACID THERAPY
     Dosage: 100 MG, 3X/DAY
     Route: 048
     Dates: start: 20080120, end: 20080208

REACTIONS (1)
  - HYDROPNEUMOTHORAX [None]
